FAERS Safety Report 19431739 (Version 1)
Quarter: 2021Q2

REPORT INFORMATION
  Report Type: Spontaneous
  Country: CA (occurrence: CA)
  Receive Date: 20210617
  Receipt Date: 20210617
  Transmission Date: 20210717
  Serious: Yes (Hospitalization)
  Sender: FDA-Public Use
  Company Number: CA-ROCHE-2848383

PATIENT
  Age: 73 Year
  Sex: Male

DRUGS (2)
  1. OXALIPLATIN. [Suspect]
     Active Substance: OXALIPLATIN
     Indication: COLON CANCER STAGE III
     Route: 065
  2. CAPECITABINE. [Suspect]
     Active Substance: CAPECITABINE
     Indication: COLON CANCER STAGE III
     Route: 065

REACTIONS (6)
  - Acute kidney injury [Unknown]
  - Diarrhoea [Unknown]
  - Gastrointestinal haemorrhage [Unknown]
  - Ileus [Unknown]
  - Metabolic acidosis [Unknown]
  - Toxicity to various agents [Unknown]
